FAERS Safety Report 8127928-3 (Version None)
Quarter: 2012Q1

REPORT INFORMATION
  Report Type: 
  Country: None (occurrence: None)
  Receive Date: 20120210
  Receipt Date: 20120124
  Transmission Date: 20120608
  Serious: Yes (Other)
  Sender: FDA-Public Use
  Company Number: FR-PFIZER INC-K201100866

PATIENT
  Age: 45 Year
  Sex: Female

DRUGS (3)
  1. BISOPROLOL [Concomitant]
  2. ALTACE [Suspect]
     Indication: CARDIAC FAILURE
     Dosage: 5 MG, 1X/DAY
     Route: 048
     Dates: start: 20110301
  3. ALTACE [Suspect]
     Dosage: 2.5 MG, 1X/DAY
     Route: 048
     Dates: end: 20110614

REACTIONS (8)
  - DIZZINESS [None]
  - RHINORRHOEA [None]
  - SKIN DISCOLOURATION [None]
  - ALOPECIA [None]
  - FEELING ABNORMAL [None]
  - ASTHENIA [None]
  - COUGH [None]
  - FATIGUE [None]
